FAERS Safety Report 4385682-5 (Version None)
Quarter: 2004Q2

REPORT INFORMATION
  Report Type: 
  Country: None (occurrence: None)
  Receive Date: 20040623
  Receipt Date: 20040616
  Transmission Date: 20050107
  Serious: Yes (Death)
  Sender: FDA-Public Use
  Company Number: EWC040438798

PATIENT
  Age: 72 Year
  Sex: Male

DRUGS (7)
  1. XIGRIS [Suspect]
     Indication: SEPSIS
  2. NORADRENALINE [Concomitant]
  3. DOPAMINE HCL [Concomitant]
  4. ENOXAPARIN SODIUM [Concomitant]
  5. VANCOMYCIN [Concomitant]
  6. VORICONAZOLE [Concomitant]
  7. CEFTAZIDIME SODIUM [Concomitant]

REACTIONS (3)
  - HAEMATOMA [None]
  - INFUSION RELATED REACTION [None]
  - MULTI-ORGAN FAILURE [None]
